FAERS Safety Report 17729138 (Version 3)
Quarter: 2020Q2

REPORT INFORMATION
  Report Type: Spontaneous
  Country: CA (occurrence: CA)
  Receive Date: 20200430
  Receipt Date: 20200525
  Transmission Date: 20200714
  Serious: Yes (Hospitalization, Other)
  Sender: FDA-Public Use
  Company Number: CA-PFIZER INC-2018082678

PATIENT
  Age: 62 Year
  Sex: Male

DRUGS (3)
  1. PLAQUENIL [Concomitant]
     Active Substance: HYDROXYCHLOROQUINE SULFATE
     Indication: RHEUMATOID ARTHRITIS
     Dosage: 200 MG, 2X/DAY
     Route: 048
  2. XELJANZ [Suspect]
     Active Substance: TOFACITINIB CITRATE
     Indication: RHEUMATOID ARTHRITIS
     Dosage: 5 MG, 2X/DAY
     Route: 048
     Dates: start: 20170913, end: 20180825
  3. XELJANZ [Suspect]
     Active Substance: TOFACITINIB CITRATE
     Dosage: 5 MG, 2X/DAY
     Route: 048
     Dates: start: 20180905

REACTIONS (15)
  - Weight decreased [Unknown]
  - Loss of consciousness [Unknown]
  - Therapeutic product effect incomplete [Unknown]
  - Tooth infection [Unknown]
  - Vomiting [Unknown]
  - Arthralgia [Unknown]
  - Heart rate decreased [Unknown]
  - Gastrointestinal disorder [Unknown]
  - Erectile dysfunction [Unknown]
  - Oesophageal disorder [Unknown]
  - Dyspepsia [Unknown]
  - Joint lock [Unknown]
  - Infection [Unknown]
  - Blood pressure decreased [Unknown]
  - Condition aggravated [Unknown]

NARRATIVE: CASE EVENT DATE: 201808
